FAERS Safety Report 7953241-0 (Version None)
Quarter: 2011Q4

REPORT INFORMATION
  Report Type: 
  Country: None (occurrence: None)
  Receive Date: 20111201
  Receipt Date: 20111121
  Transmission Date: 20120403
  Serious: Yes (Hospitalization)
  Sender: FDA-Public Use
  Company Number: FR-GILEAD-2011-0046977

PATIENT
  Sex: Male

DRUGS (12)
  1. PREZISTA [Concomitant]
     Dosage: 400 MG, BID
     Route: 048
     Dates: start: 20110413
  2. NORVIR [Concomitant]
     Indication: HIV INFECTION
     Dosage: 1 DF, QD
     Route: 048
     Dates: start: 20110413
  3. BACTRIM [Concomitant]
  4. RIFABUTIN [Concomitant]
     Indication: LATENT TUBERCULOSIS
     Dosage: 150 MG, QD
     Route: 048
     Dates: start: 20111001, end: 20111114
  5. AMLODIPINE BESYLATE [Concomitant]
  6. NEURONTIN [Concomitant]
  7. LYRICA [Concomitant]
  8. ALFUZOSIN HCL [Concomitant]
  9. LEXOMIL [Concomitant]
  10. ZOLPIDEM [Concomitant]
  11. TRUVADA [Suspect]
     Indication: HIV INFECTION
     Dosage: UNK
     Route: 048
     Dates: start: 20110413, end: 20111110
  12. RIMIFON [Concomitant]

REACTIONS (2)
  - FANCONI SYNDROME ACQUIRED [None]
  - BICYTOPENIA [None]
